FAERS Safety Report 6086140-2 (Version None)
Quarter: 2009Q1

REPORT INFORMATION
  Report Type: 
  Country: None (occurrence: None)
  Receive Date: 20090220
  Receipt Date: 20090219
  Transmission Date: 20090719
  Serious: Yes (Life-Threatening, Hospitalization)
  Sender: FDA-Public Use
  Company Number: US-BRISTOL-MYERS SQUIBB COMPANY-14509871

PATIENT
  Age: 77 Year
  Sex: Male
  Weight: 59 kg

DRUGS (4)
  1. ERBITUX [Suspect]
     Indication: OESOPHAGEAL ADENOCARCINOMA
     Dosage: STARTED ON 05JAN2009
     Dates: start: 20090126, end: 20090126
  2. CISPLATIN [Suspect]
     Indication: OESOPHAGEAL ADENOCARCINOMA
     Dosage: STARTED ON 05JAN2009
     Dates: start: 20090126, end: 20090126
  3. TAXOL [Suspect]
     Indication: OESOPHAGEAL ADENOCARCINOMA
     Dosage: STARTED ON 05JAN2009
     Dates: start: 20090126, end: 20090126
  4. RADIATION THERAPY [Suspect]
     Indication: OESOPHAGEAL ADENOCARCINOMA
     Dosage: 1 DF = 3960 GY;NO.OF FRACTIONS-22
     Dates: start: 20090206, end: 20090206

REACTIONS (4)
  - DYSPHAGIA [None]
  - FATIGUE [None]
  - NAUSEA [None]
  - VOMITING [None]
